FAERS Safety Report 6153629-7 (Version None)
Quarter: 2009Q2

REPORT INFORMATION
  Report Type: 
  Country: None (occurrence: None)
  Receive Date: 20090409
  Receipt Date: 20090327
  Transmission Date: 20091009
  Serious: Yes (Hospitalization, Other)
  Sender: FDA-Public Use
  Company Number: JPI-P-006402

PATIENT
  Age: 85 Year
  Sex: Female

DRUGS (5)
  1. LUVOX [Suspect]
     Indication: DEPRESSION
     Dosage: (50 MG,1 D),ORAL
     Route: 048
     Dates: end: 20090212
  2. LANSOPRAZOLE [Concomitant]
  3. NIFEDIPINE [Concomitant]
  4. LOSARTAN POTASSIUM [Concomitant]
  5. ZOLPIDEM TARTRATE [Concomitant]

REACTIONS (3)
  - ASCITES [None]
  - DEHYDRATION [None]
  - INAPPROPRIATE ANTIDIURETIC HORMONE SECRETION [None]
